FAERS Safety Report 23556505 (Version 1)
Quarter: 2024Q1

REPORT INFORMATION
  Report Type: Spontaneous
  Country: US (occurrence: US)
  Receive Date: 20240223
  Receipt Date: 20240223
  Transmission Date: 20240409
  Serious: No
  Sender: FDA-Public Use
  Company Number: US-MORPHOSYS US-2023-MOR004981-US

PATIENT

DRUGS (1)
  1. MONJUVI [Suspect]
     Active Substance: TAFASITAMAB-CXIX
     Indication: Product used for unknown indication
     Dosage: UNK MILLIGRAM, EVERY OTHER WEEK
     Route: 065
     Dates: start: 20231226

REACTIONS (5)
  - Fatigue [Unknown]
  - Somnolence [Unknown]
  - Pain in extremity [Unknown]
  - Oedema peripheral [Unknown]
  - Lymphoedema [Unknown]
